FAERS Safety Report 9183608 (Version 2)
Quarter: 2013Q2

REPORT INFORMATION
  Report Type: Spontaneous
  Country: US (occurrence: US)
  Receive Date: 20130322
  Receipt Date: 20130520
  Transmission Date: 20140414
  Serious: No
  Sender: FDA-Public Use
  Company Number: US-ASTRAZENECA-2013SE16136

PATIENT
  Age: 59 Year
  Sex: Female
  Weight: 98.9 kg

DRUGS (3)
  1. NEXIUM [Suspect]
     Indication: GASTROOESOPHAGEAL REFLUX DISEASE
     Route: 048
     Dates: start: 2011
  2. NEXIUM [Suspect]
     Indication: GASTROOESOPHAGEAL REFLUX DISEASE
     Route: 048
     Dates: start: 2011
  3. HYPERTENSION MEDICATION [Concomitant]
     Indication: HYPERTENSION

REACTIONS (3)
  - Bronchitis [Unknown]
  - Pain [Unknown]
  - Malaise [Unknown]
